FAERS Safety Report 9634929 (Version 1)
Quarter: 2013Q4

REPORT INFORMATION
  Report Type: Spontaneous
  Country: US (occurrence: US)
  Receive Date: 20131021
  Receipt Date: 20131021
  Transmission Date: 20140711
  Serious: No
  Sender: FDA-Public Use
  Company Number: US-BAYER-2013-127146

PATIENT
  Age: 75 Year
  Sex: Female
  Weight: 57.6 kg

DRUGS (8)
  1. ALEVE LIQUID GELS [Suspect]
     Indication: BACK PAIN
     Dosage: 2 DF, ONCE
     Route: 048
     Dates: start: 20131017, end: 20131017
  2. ALEVE TABLET [Suspect]
     Indication: BACK PAIN
     Dosage: 2 DF, QD
     Route: 048
  3. VITAMIN D3 [Concomitant]
  4. FISH OIL [Concomitant]
  5. Q10 [Concomitant]
  6. VITAMIN C [Concomitant]
  7. MAGNESIUM [Concomitant]
  8. MULTIVITAMIN [Concomitant]

REACTIONS (1)
  - Drug ineffective [None]
